FAERS Safety Report 7414698-7 (Version None)
Quarter: 2011Q2

REPORT INFORMATION
  Report Type: 
  Country: None (occurrence: None)
  Receive Date: 20110414
  Receipt Date: 20090112
  Transmission Date: 20111010
  Serious: Yes (Other)
  Sender: FDA-Public Use
  Company Number: US-BAYER-200910317NA

PATIENT
  Age: 62 Year
  Sex: Male
  Weight: 79.365 kg

DRUGS (18)
  1. PLAVIX [Concomitant]
  2. MILRINONE [Concomitant]
     Dosage: UNK
     Route: 042
     Dates: start: 20061115
  3. FENTANYL [Concomitant]
     Dosage: UNK
     Route: 042
     Dates: start: 20061115, end: 20061115
  4. LEVAQUIN [Concomitant]
     Indication: PNEUMONIA
     Dosage: UNK
     Dates: start: 20061123
  5. DOPAMINE HCL [Concomitant]
     Dosage: UNK
     Route: 042
     Dates: start: 20061115
  6. TRASYLOL [Suspect]
     Dosage: 50 ML/HOUR INFUSION
     Dates: start: 20061115, end: 20061115
  7. OPTIRAY 350 [Concomitant]
     Indication: CATHETERISATION CARDIAC
     Dosage: 90 ML, UNK
     Dates: start: 20061112
  8. TRASYLOL [Suspect]
     Indication: CORONARY ARTERY BYPASS
     Dosage: 1 ML,TEST DOSE
     Route: 042
     Dates: start: 20061115, end: 20061115
  9. TRASYLOL [Suspect]
     Indication: MITRAL VALVE REPAIR
     Dosage: 200 ML, PUMP PRIME
     Route: 042
     Dates: start: 20061115, end: 20061115
  10. TRASYLOL [Suspect]
     Dosage: 200 ML LOADING DOSE
     Dates: start: 20061115
  11. LISINOPRIL [Concomitant]
  12. HEPARIN [Concomitant]
     Dosage: 30000 U, UNK
     Route: 042
     Dates: start: 20061115, end: 20061115
  13. PAVULON [Concomitant]
     Dosage: UNK
     Route: 042
     Dates: start: 20061115, end: 20061115
  14. TRASYLOL [Suspect]
     Dosage: UNK
     Dates: start: 20061122
  15. VANCOMYCIN [Concomitant]
     Dosage: UNK
     Route: 042
     Dates: start: 20061115
  16. LEVOPHED [Concomitant]
     Dosage: UNK
     Route: 042
     Dates: start: 20061115, end: 20070123
  17. RED BLOOD CELLS [Concomitant]
     Dosage: 2 U, UNK
     Dates: start: 20061115
  18. VERSED [Concomitant]
     Dosage: 10 ML, UNK
     Route: 042
     Dates: start: 20061115, end: 20061115

REACTIONS (12)
  - MENTAL DISORDER [None]
  - EMOTIONAL DISTRESS [None]
  - PAIN [None]
  - RENAL IMPAIRMENT [None]
  - ANXIETY [None]
  - RENAL FAILURE [None]
  - INJURY [None]
  - RENAL INJURY [None]
  - ANHEDONIA [None]
  - UNEVALUABLE EVENT [None]
  - FEAR [None]
  - STRESS [None]
